FAERS Safety Report 11909670 (Version 1)
Quarter: 2016Q1

REPORT INFORMATION
  Report Type: Spontaneous
  Country: GB (occurrence: GB)
  Receive Date: 20160112
  Receipt Date: 20160112
  Transmission Date: 20160526
  Serious: Yes (Death, Life-Threatening, Other)
  Sender: FDA-Public Use
  Company Number: GB-BRISTOL-MYERS SQUIBB COMPANY-10556496

PATIENT
  Age: 31 Year
  Sex: Female

DRUGS (3)
  1. NEVIRAPINE. [Concomitant]
     Active Substance: NEVIRAPINE
     Indication: ACQUIRED IMMUNODEFICIENCY SYNDROME
     Dosage: 400 MG, QD
     Route: 048
     Dates: start: 199809, end: 20000905
  2. ZERIT [Suspect]
     Active Substance: STAVUDINE
     Indication: ACQUIRED IMMUNODEFICIENCY SYNDROME
     Dosage: 80 MG, QD
     Route: 048
     Dates: start: 19980912, end: 20000905
  3. VIDEX [Suspect]
     Active Substance: DIDANOSINE
     Indication: ACQUIRED IMMUNODEFICIENCY SYNDROME
     Dosage: 400 MG, QD
     Route: 048
     Dates: start: 199809, end: 20000905

REACTIONS (7)
  - Sepsis [Fatal]
  - Stillbirth [Unknown]
  - Mitochondrial toxicity [Unknown]
  - Gestational hypertension [Unknown]
  - Pregnancy [Recovered/Resolved]
  - Lactic acidosis [Fatal]
  - Caesarean section [Unknown]

NARRATIVE: CASE EVENT DATE: 2000
